FAERS Safety Report 11185240 (Version 1)
Quarter: 2015Q2

REPORT INFORMATION
  Report Type: Report from Study
  Country: DE (occurrence: DE)
  Receive Date: 20150612
  Receipt Date: 20150612
  Transmission Date: 20150821
  Serious: Yes (Death, Hospitalization, Other)
  Sender: FDA-Public Use
  Company Number: DE-GILEAD-2014-0128716

PATIENT
  Age: 69 Year
  Sex: Male
  Weight: 52 kg

DRUGS (19)
  1. CALCIUM [Concomitant]
     Active Substance: CALCIUM
  2. ZINKAMIN [Concomitant]
  3. CELLCEPT [Concomitant]
     Active Substance: MYCOPHENOLATE MOFETIL\MYCOPHENOLATE MOFETIL HYDROCHLORIDE
  4. ALPHA LIPONSAURE [Concomitant]
  5. PANTOZOL [Concomitant]
     Active Substance: PANTOPRAZOLE SODIUM
     Dosage: 20 MG, UNK
  6. ATORVASTATIN [Concomitant]
     Active Substance: ATORVASTATIN
  7. SOFOSBUVIR [Suspect]
     Active Substance: SOFOSBUVIR
     Indication: CHRONIC HEPATITIS C
     Dosage: 400 MG, QD
     Route: 048
     Dates: start: 20141030, end: 20150416
  8. UDC [Concomitant]
  9. ALLOPURINOL. [Concomitant]
     Active Substance: ALLOPURINOL
  10. DACLATASVIR [Suspect]
     Active Substance: DACLATASVIR
     Indication: CHRONIC HEPATITIS C
     Dosage: 60 MG, QD
     Route: 048
     Dates: start: 20141030, end: 20150416
  11. PLAVIX [Concomitant]
     Active Substance: CLOPIDOGREL BISULFATE
  12. MAGNESIUM [Concomitant]
     Active Substance: MAGNESIUM
  13. RED BLOOD CELLS, CONCENTRATED [Concomitant]
     Active Substance: HUMAN RED BLOOD CELL
     Dosage: UNK
     Dates: start: 20150224, end: 20150303
  14. DECORTIN [Concomitant]
     Active Substance: PREDNISONE
  15. PROTAPHANE [Concomitant]
     Active Substance: INSULIN HUMAN
  16. ROCALCITOL [Concomitant]
  17. NOVORAPID [Concomitant]
     Active Substance: INSULIN ASPART
  18. MILGAMMA                           /00089801/ [Concomitant]
  19. VIGANTOLETTEN [Concomitant]
     Active Substance: CHOLECALCIFEROL

REACTIONS (8)
  - Gastrointestinal haemorrhage [Recovered/Resolved]
  - Oesophageal varices haemorrhage [Fatal]
  - Cough [Recovered/Resolved]
  - Aspiration [Fatal]
  - Haematemesis [Fatal]
  - Gangrene [Unknown]
  - Cardiopulmonary failure [Fatal]
  - Hepatic cirrhosis [Fatal]

NARRATIVE: CASE EVENT DATE: 20141115
